FAERS Safety Report 23631956 (Version 1)
Quarter: 2024Q1

REPORT INFORMATION
  Report Type: Spontaneous
  Country: US (occurrence: None)
  Receive Date: 20240313
  Receipt Date: 20240313
  Transmission Date: 20240409
  Serious: No
  Sender: FDA-Public Use
  Company Number: None

PATIENT
  Age: 53 Year
  Sex: Male
  Weight: 90.45 kg

DRUGS (1)
  1. WEGOVY [Suspect]
     Active Substance: SEMAGLUTIDE
     Dates: start: 20230601

REACTIONS (7)
  - Nausea [None]
  - Vomiting [None]
  - Asthenia [None]
  - Fatigue [None]
  - Headache [None]
  - Constipation [None]
  - Therapy change [None]
